FAERS Safety Report 18372632 (Version 1)
Quarter: 2020Q4

REPORT INFORMATION
  Report Type: Spontaneous
  Country: US (occurrence: US)
  Receive Date: 20201012
  Receipt Date: 20201012
  Transmission Date: 20210114
  Serious: Yes (Hospitalization, Disabling, Other)
  Sender: FDA-Public Use
  Company Number: US-PURDUE-USA-2020-0169757

PATIENT
  Age: 28 Year
  Sex: Female

DRUGS (12)
  1. BUPRENORPHINE TRANSDERMAL PATCH (SIMILAR TO NDA 21-306) [Suspect]
     Active Substance: BUPRENORPHINE
     Indication: PRODUCT USED FOR UNKNOWN INDICATION
     Dosage: UNK
     Route: 062
  2. MORPHINE SULFATE (SIMILAR TO NDA 19-516) [Suspect]
     Active Substance: MORPHINE SULFATE
     Indication: ENDOMETRIOSIS
     Dosage: UNK
     Route: 048
  3. OXYCODONE HCL TABLETS (RHODES 91-490) [Suspect]
     Active Substance: OXYCODONE HYDROCHLORIDE
     Indication: PRODUCT USED FOR UNKNOWN INDICATION
     Dosage: UNK
     Route: 048
  4. DILAUDID [Suspect]
     Active Substance: HYDROMORPHONE HYDROCHLORIDE
     Indication: ENDOMETRIOSIS
     Dosage: UNK
     Route: 048
  5. TRAMADOL. [Suspect]
     Active Substance: TRAMADOL
     Indication: PRODUCT USED FOR UNKNOWN INDICATION
     Dosage: UNK
     Route: 065
  6. VICODIN [Suspect]
     Active Substance: ACETAMINOPHEN\HYDROCODONE BITARTRATE
     Indication: ENDOMETRIOSIS
     Dosage: UNK
     Route: 065
  7. OXYCONTIN [Suspect]
     Active Substance: OXYCODONE HYDROCHLORIDE
     Indication: ENDOMETRIOSIS
     Route: 048
  8. HYDROCODONE BITARTRATE AND ACETAMINOPHEN [Suspect]
     Active Substance: ACETAMINOPHEN\HYDROCODONE BITARTRATE
     Indication: PRODUCT USED FOR UNKNOWN INDICATION
     Dosage: UNK
     Route: 048
  9. PERCOCET                           /00446701/ [Suspect]
     Active Substance: ACETAMINOPHEN\OXYCODONE HYDROCHLORIDE\OXYCODONE TEREPHTHALATE
     Indication: ENDOMETRIOSIS
     Dosage: UNK
     Route: 065
  10. MORPHINE [Suspect]
     Active Substance: MORPHINE
     Indication: ENDOMETRIOSIS
     Dosage: UNK
     Route: 065
  11. XANAX [Suspect]
     Active Substance: ALPRAZOLAM
     Indication: ENDOMETRIOSIS
     Dosage: UNK
     Route: 065
  12. METHADONE [Suspect]
     Active Substance: METHADONE HYDROCHLORIDE
     Indication: ENDOMETRIOSIS
     Dosage: UNK
     Route: 065

REACTIONS (7)
  - Drug dependence [Unknown]
  - Pain [Unknown]
  - Euphoric mood [Unknown]
  - Infertility [Unknown]
  - Bone loss [Unknown]
  - Dental caries [Unknown]
  - Hysterectomy [Unknown]
